FAERS Safety Report 10145680 (Version 1)
Quarter: 2014Q2

REPORT INFORMATION
  Report Type: Report from Study
  Country: FI (occurrence: FI)
  Receive Date: 20140501
  Receipt Date: 20140501
  Transmission Date: 20141212
  Serious: Yes (Hospitalization)
  Sender: FDA-Public Use
  Company Number: PHHY2014FI051047

PATIENT
  Age: 46 Year
  Sex: Male

DRUGS (6)
  1. LEPONEX [Suspect]
     Indication: SCHIZOPHRENIA
     Dosage: 500 MG, DAILY
     Route: 048
  2. LEPONEX [Suspect]
     Dosage: 100 MG, DAILY
     Route: 048
  3. LEPONEX [Suspect]
     Dosage: 100 MG, DAILY
     Route: 048
     Dates: start: 201404
  4. LEPONEX [Suspect]
     Dosage: 100 MG, DAILY
     Route: 048
     Dates: start: 20140424
  5. LEPONEX [Suspect]
     Dosage: UNK
     Route: 048
     Dates: start: 20140425
  6. ABILIFY [Concomitant]
     Indication: SCHIZOPHRENIA
     Dosage: UNK

REACTIONS (5)
  - Suicide attempt [Unknown]
  - Contusion [Unknown]
  - General physical health deterioration [Not Recovered/Not Resolved]
  - Eosinophilia [Not Recovered/Not Resolved]
  - Constipation [Unknown]
